FAERS Safety Report 20057607 (Version 1)
Quarter: 2021Q4

REPORT INFORMATION
  Report Type: Spontaneous
  Country: FI (occurrence: FI)
  Receive Date: 20211111
  Receipt Date: 20211111
  Transmission Date: 20220304
  Serious: Yes (Other)
  Sender: FDA-Public Use
  Company Number: FI-AMGEN-FINSP2021171563

PATIENT
  Age: 63 Year
  Sex: Male

DRUGS (8)
  1. XGEVA [Suspect]
     Active Substance: DENOSUMAB
     Indication: Metastases to bone
     Dosage: UNK
     Route: 065
  2. XGEVA [Suspect]
     Active Substance: DENOSUMAB
     Indication: Hormone-refractory prostate cancer
  3. XOFIGO [Concomitant]
     Active Substance: RADIUM RA-223 DICHLORIDE
  4. DEGARELIX [Concomitant]
     Active Substance: DEGARELIX
  5. BICALUTAMIDE [Concomitant]
     Active Substance: BICALUTAMIDE
  6. DOCETAXEL [Concomitant]
     Active Substance: DOCETAXEL
  7. ABIRATERONE [Concomitant]
     Active Substance: ABIRATERONE
  8. ENZALUTAMIDE [Concomitant]
     Active Substance: ENZALUTAMIDE

REACTIONS (1)
  - Prostate cancer metastatic [Unknown]
